FAERS Safety Report 15272898 (Version 1)
Quarter: 2018Q3

REPORT INFORMATION
  Report Type: Spontaneous
  Country: US (occurrence: US)
  Receive Date: 20180813
  Receipt Date: 20180813
  Transmission Date: 20181010
  Serious: No
  Sender: FDA-Public Use
  Company Number: US-PURDUE-USA-2018-0143037

PATIENT
  Sex: Female

DRUGS (2)
  1. BUTRANS [Suspect]
     Active Substance: BUPRENORPHINE
     Indication: PAIN
  2. BUTRANS [Suspect]
     Active Substance: BUPRENORPHINE
     Indication: SCAR
     Dosage: 7.5 MCG/HR, WEEKLY
     Route: 062
     Dates: start: 20171205

REACTIONS (2)
  - Inadequate analgesia [Unknown]
  - Product use in unapproved indication [Unknown]
